FAERS Safety Report 25244042 (Version 1)
Quarter: 2025Q2

REPORT INFORMATION
  Report Type: Report from Study
  Country: CA (occurrence: CA)
  Receive Date: 20250428
  Receipt Date: 20250428
  Transmission Date: 20250717
  Serious: Yes (Death, Other)
  Sender: MERZ
  Company Number: CA-MERZ PHARMACEUTICALS, LLC-ACO_177393_2025

PATIENT

DRUGS (1)
  1. DALFAMPRIDINE [Suspect]
     Active Substance: DALFAMPRIDINE
     Indication: Relapsing-remitting multiple sclerosis
     Dosage: 10 MILLIGRAM, Q12H
     Route: 048
     Dates: start: 20170913

REACTIONS (1)
  - Death [Fatal]
